FAERS Safety Report 23998813 (Version 3)
Quarter: 2025Q3

REPORT INFORMATION
  Report Type: Report from Study
  Country: AR (occurrence: AR)
  Receive Date: 20240621
  Receipt Date: 20250902
  Transmission Date: 20251021
  Serious: Yes (Hospitalization, Other)
  Sender: RECORDATI
  Company Number: AR-RECORDATI-2024004553

PATIENT
  Sex: Male
  Weight: 104 kg

DRUGS (5)
  1. SIGNIFOR LAR [Suspect]
     Active Substance: PASIREOTIDE PAMOATE
     Indication: Acromegaly
     Route: 030
     Dates: start: 200911
  2. PHENYTOIN SODIUM [Concomitant]
     Active Substance: PHENYTOIN SODIUM
     Indication: Product used for unknown indication
  3. HYDROCORTISONE [Concomitant]
     Active Substance: HYDROCORTISONE
     Indication: Product used for unknown indication
     Dates: start: 200911
  4. LEVOTHYROXINE [Concomitant]
     Active Substance: LEVOTHYROXINE
     Indication: Thyroid disorder
  5. PHENYTOIN [Concomitant]
     Active Substance: PHENYTOIN
     Indication: Epilepsy
     Dates: start: 200911

REACTIONS (3)
  - Hospitalisation [Unknown]
  - Porcelain gallbladder [Not Recovered/Not Resolved]
  - Cholecystitis [Not Recovered/Not Resolved]

NARRATIVE: CASE EVENT DATE: 20180101
